FAERS Safety Report 5121110-X (Version None)
Quarter: 2006Q4

REPORT INFORMATION
  Report Type: 
  Country: None (occurrence: None)
  Receive Date: 20061002
  Receipt Date: 20060911
  Transmission Date: 20070319
  Serious: Yes (Hospitalization)
  Sender: FDA-Public Use
  Company Number: US200609002686

PATIENT
  Age: 79 Year
  Sex: Female

DRUGS (3)
  1. CYMBALTA [Suspect]
     Indication: BIPOLAR DISORDER
     Dosage: SEE IMAGE
     Dates: start: 20060501
  2. ATENOLOL [Concomitant]
  3. LASIX [Concomitant]

REACTIONS (3)
  - MULTIPLE DRUG OVERDOSE [None]
  - PAIN [None]
  - THINKING ABNORMAL [None]
